FAERS Safety Report 20517302 (Version 1)
Quarter: 2022Q1

REPORT INFORMATION
  Report Type: Spontaneous
  Country: US (occurrence: US)
  Receive Date: 20220225
  Receipt Date: 20220225
  Transmission Date: 20220424
  Serious: No
  Sender: FDA-Public Use
  Company Number: US-RECORDATI RARE DISEASE INC.-2021002714

PATIENT
  Sex: Female

DRUGS (2)
  1. DESOXYN [Suspect]
     Active Substance: METHAMPHETAMINE HYDROCHLORIDE
     Indication: Attention deficit hyperactivity disorder
     Dosage: 1 TABLET THREE TIMES A DAY
     Route: 048
     Dates: start: 201812, end: 2021
  2. DESOXYN [Suspect]
     Active Substance: METHAMPHETAMINE HYDROCHLORIDE
     Dosage: PARTIAL DOSING
     Route: 048
     Dates: start: 2019

REACTIONS (9)
  - Memory impairment [Unknown]
  - Migraine [Unknown]
  - Fibromyalgia [Not Recovered/Not Resolved]
  - Therapy interrupted [Unknown]
  - Product availability issue [Unknown]
  - Product substitution issue [Unknown]
  - Inappropriate schedule of product administration [Recovered/Resolved]
  - Underdose [Recovered/Resolved]
  - No adverse event [Unknown]

NARRATIVE: CASE EVENT DATE: 20190101
